FAERS Safety Report 9351321 (Version 2)
Quarter: 2013Q4

REPORT INFORMATION
  Report Type: Spontaneous
  Country: GB (occurrence: GB)
  Receive Date: 20130617
  Receipt Date: 20131028
  Transmission Date: 20140711
  Serious: Yes (Other)
  Sender: FDA-Public Use
  Company Number: PHHY2013GB058560

PATIENT
  Age: 74 Year
  Sex: Female
  Weight: 79.37 kg

DRUGS (2)
  1. ATORVASTATIN [Suspect]
     Indication: BLOOD CHOLESTEROL INCREASED
     Dosage: 5 MG, QD
     Route: 048
     Dates: start: 20121201, end: 20121214
  2. WARFARIN [Concomitant]
     Dosage: 3 MG, QD
     Dates: start: 1994

REACTIONS (2)
  - Dysstasia [Recovered/Resolved]
  - Dizziness [Recovered/Resolved]
